FAERS Safety Report 24738791 (Version 1)
Quarter: 2024Q4

REPORT INFORMATION
  Report Type: Spontaneous
  Country: CA (occurrence: CA)
  Receive Date: 20241216
  Receipt Date: 20241216
  Transmission Date: 20250115
  Serious: Yes (Other)
  Sender: TEVA
  Company Number: CA-TEVA-VS-3275390

PATIENT
  Age: 50 Year
  Sex: Female
  Weight: 133 kg

DRUGS (9)
  1. MESALAMINE [Suspect]
     Active Substance: MESALAMINE
     Indication: Crohn^s disease
     Dosage: DOSE FROM : NOT SPECIFIED
     Route: 065
  2. HUMIRA [Suspect]
     Active Substance: ADALIMUMAB
     Indication: Crohn^s disease
     Dosage: DOSE FORM : NOT SPECIFIED
     Route: 065
  3. HUMIRA [Suspect]
     Active Substance: ADALIMUMAB
     Indication: Crohn^s disease
     Dosage: DOSE FORM : NOT SPECIFIED
     Route: 058
  4. HUMIRA [Suspect]
     Active Substance: ADALIMUMAB
     Indication: Crohn^s disease
     Dosage: DOSE FORM : NOT SPECIFIED
     Route: 065
  5. MESALAMINE [Suspect]
     Active Substance: MESALAMINE
     Indication: Crohn^s disease
     Dosage: DOSE FORM : TABLET (DELAYED AND EXTENDED RELEASE)
     Route: 065
  6. BUDESONIDE [Suspect]
     Active Substance: BUDESONIDE
     Indication: Crohn^s disease
     Dosage: DOSE FORM : NOT SPECIFIED
     Route: 065
  7. STELARA [Suspect]
     Active Substance: USTEKINUMAB
     Indication: Crohn^s disease
     Dosage: DOSE FORM : SOLUTION SUBCUTANEOUS
     Route: 065
  8. STELARA [Suspect]
     Active Substance: USTEKINUMAB
     Indication: Crohn^s disease
     Dosage: DOSE FORM : SOLUTION SUBCUTANEOUS
     Route: 058
  9. STELARA [Suspect]
     Active Substance: USTEKINUMAB
     Indication: Crohn^s disease
     Dosage: DOSE FORM : SOLUTION SUBCUTANEOUS
     Route: 058

REACTIONS (2)
  - Crohn^s disease [Unknown]
  - Treatment failure [Unknown]
